FAERS Safety Report 6938345-3 (Version None)
Quarter: 2010Q3

REPORT INFORMATION
  Report Type: 
  Country: None (occurrence: None)
  Receive Date: 20100824
  Receipt Date: 20100812
  Transmission Date: 20110219
  Serious: Yes (Other)
  Sender: FDA-Public Use
  Company Number: CH-PFIZER INC-2010101331

PATIENT
  Age: 69 Year
  Sex: Female

DRUGS (2)
  1. SALAZOPYRIN [Suspect]
     Indication: PSORIATIC ARTHROPATHY
     Dosage: 500 MG, 1X/DAY
     Route: 048
     Dates: start: 20100610, end: 20100616
  2. SALAZOPYRIN [Suspect]
     Dosage: 500 MG, 2X/DAY
     Route: 048
     Dates: start: 20100617, end: 20100621

REACTIONS (8)
  - AGRANULOCYTOSIS [None]
  - DRUG HYPERSENSITIVITY [None]
  - EOSINOPHILIA [None]
  - HEPATIC ENZYME INCREASED [None]
  - HEPATITIS [None]
  - HYPOTENSION [None]
  - RASH [None]
  - SYSTEMIC INFLAMMATORY RESPONSE SYNDROME [None]
